FAERS Safety Report 7095198-3 (Version None)
Quarter: 2010Q4

REPORT INFORMATION
  Report Type: 
  Country: None (occurrence: None)
  Receive Date: 20101111
  Receipt Date: 20100112
  Transmission Date: 20110411
  Serious: Yes (Other)
  Sender: FDA-Public Use
  Company Number: US-ASTRAZENECA-2007UW05562

PATIENT
  Age: 21822 Day
  Sex: Male
  Weight: 79.4 kg

DRUGS (30)
  1. SEROQUEL [Suspect]
     Indication: BIPOLAR DISORDER
     Dosage: 25 MG ONE IN MORNING AND TWO AT NIGHT
     Route: 048
     Dates: start: 20020717
  2. SEROQUEL [Suspect]
     Indication: MAJOR DEPRESSION
     Dosage: 25 MG ONE IN MORNING AND TWO AT NIGHT
     Route: 048
     Dates: start: 20020717
  3. SEROQUEL [Suspect]
     Indication: SCHIZOPHRENIA, PARANOID TYPE
     Dosage: 25 MG ONE IN MORNING AND TWO AT NIGHT
     Route: 048
     Dates: start: 20020717
  4. SEROQUEL [Suspect]
     Route: 048
     Dates: start: 20031210, end: 20060228
  5. SEROQUEL [Suspect]
     Route: 048
     Dates: start: 20031210, end: 20060228
  6. SEROQUEL [Suspect]
     Route: 048
     Dates: start: 20031210, end: 20060228
  7. SEROQUEL [Suspect]
     Route: 048
     Dates: start: 20060118, end: 20060320
  8. SEROQUEL [Suspect]
     Route: 048
     Dates: start: 20060118, end: 20060320
  9. SEROQUEL [Suspect]
     Route: 048
     Dates: start: 20060118, end: 20060320
  10. ELAVIL [Concomitant]
     Route: 048
  11. NOVOLOG [Concomitant]
     Dosage: 3-15 UNIT WITH BREAKFAST AND LUNCH
     Route: 058
  12. NITROSTAT [Concomitant]
     Dosage: 0.4-0.6 MG
     Route: 060
  13. IBUPROFEN [Concomitant]
     Route: 048
  14. LIPITOR [Concomitant]
     Dosage: 10-40 MG
     Route: 048
  15. ASPIRIN [Concomitant]
     Route: 048
  16. VERAPAMIL [Concomitant]
     Dosage: 240-360 MG
     Route: 048
  17. ABILIFY [Concomitant]
     Dosage: 5-15 MG
     Route: 048
  18. ABILIFY [Concomitant]
     Dosage: 7.5M/15 MG
     Dates: start: 20050101
  19. TRAZODONE [Concomitant]
     Dosage: 50/100 MG
     Route: 048
     Dates: start: 20050101
  20. LEXAPRO [Concomitant]
     Dosage: 10-20 MG
     Route: 048
  21. LEXAPRO [Concomitant]
     Dosage: 20 MG
     Dates: start: 20050501
  22. FLOMAX [Concomitant]
     Route: 048
  23. COZAAR [Concomitant]
     Dosage: 50-100 MG
     Route: 048
  24. NEXIUM [Concomitant]
     Route: 048
  25. ENALAPRIL MALEATE [Concomitant]
     Route: 048
  26. HYDROCHLOROTHIAZDE TAB [Concomitant]
     Route: 048
  27. GEODON [Concomitant]
     Dates: start: 20040901
  28. BUSPAR [Concomitant]
     Dates: start: 20051201
  29. EFFEXOR XR [Concomitant]
     Dates: start: 20020717
  30. SONATA [Concomitant]
     Dates: start: 20020717

REACTIONS (7)
  - ANGINA PECTORIS [None]
  - CARDIAC DISORDER [None]
  - CHEST PAIN [None]
  - DIABETES MELLITUS [None]
  - HYPOGLYCAEMIA [None]
  - PNEUMONIA [None]
  - TYPE 2 DIABETES MELLITUS [None]
